FAERS Safety Report 8821243 (Version 1)
Quarter: 2012Q4

REPORT INFORMATION
  Report Type: 
  Country: CA (occurrence: CA)
  Receive Date: 20121002
  Receipt Date: 20121002
  Transmission Date: 20130627
  Serious: Yes (Other)
  Sender: FDA-Public Use
  Company Number: CA-UCBSA-067891

PATIENT
  Age: 26 Year
  Sex: Male

DRUGS (2)
  1. VIMPAT [Suspect]
     Dosage: INCREASED TO 100 MG, 4 PILLS A DAY
     Dates: start: 201209
  2. VIMPAT [Suspect]
     Dosage: VIMPAT 100MG TABLETS

REACTIONS (3)
  - Partial seizures [Not Recovered/Not Resolved]
  - Disability [Not Recovered/Not Resolved]
  - Head banging [Not Recovered/Not Resolved]
